FAERS Safety Report 9168281 (Version 1)
Quarter: 2013Q1

REPORT INFORMATION
  Report Type: Spontaneous
  Country: CZ (occurrence: None)
  Receive Date: 20130308
  Receipt Date: 20130308
  Transmission Date: 20140127
  Serious: Yes (Other)
  Sender: FDA-Public Use
  Company Number: 2013P1002852

PATIENT
  Age: 64 Year
  Sex: Female

DRUGS (4)
  1. IRINOTECAN [Suspect]
     Indication: COLORECTAL CANCER METASTATIC
     Dosage: 100 MG/M2; 1-2HRWEEKLY;
  2. IRINOTECAN [Suspect]
     Indication: METASTASES TO LIVER
     Dosage: 100 MG/M2; 1-2HRWEEKLY;
  3. LEUCOVORIN (CON.) [Concomitant]
  4. FLUROURACIL (CON.) [Concomitant]

REACTIONS (5)
  - Hepatotoxicity [None]
  - Hepatic steatosis [None]
  - Hepatic necrosis [None]
  - Hepatic fibrosis [None]
  - Hepatitis [None]
